FAERS Safety Report 16219131 (Version 2)
Quarter: 2019Q3

REPORT INFORMATION
  Report Type: Spontaneous
  Country: DE (occurrence: DE)
  Receive Date: 20190419
  Receipt Date: 20190912
  Transmission Date: 20191004
  Serious: Yes (Hospitalization, Other)
  Sender: FDA-Public Use
  Company Number: DE-ALLERGAN-1916346US

PATIENT
  Sex: Female

DRUGS (5)
  1. MENOGON [Suspect]
     Active Substance: MENOTROPINS
     Indication: ASSISTED REPRODUCTIVE TECHNOLOGY
     Dosage: 1 AMP. + 125 IU, UNK
     Route: 058
     Dates: start: 20190305, end: 20190313
  2. ORGALUTRAN [Suspect]
     Active Substance: GANIRELIX ACETATE
     Indication: PRODUCT USED FOR UNKNOWN INDICATION
     Dosage: UNK
     Dates: start: 20190309, end: 20190313
  3. PUREGON [FOLLITROPIN ALFA] [Suspect]
     Active Substance: FOLLITROPIN
     Indication: ASSISTED REPRODUCTIVE TECHNOLOGY
     Dosage: UNK
     Dates: start: 2019
  4. BREVACTID [Suspect]
     Active Substance: GONADOTROPHIN, CHORIONIC
     Indication: ASSISTED REPRODUCTIVE TECHNOLOGY
     Dosage: 750 IU, UNKNOWN
  5. TRIPTORELIN PAMOATE - BP [Suspect]
     Active Substance: TRIPTORELIN PAMOATE
     Indication: ASSISTED REPRODUCTIVE TECHNOLOGY
     Dosage: 750 UNK, UNKNOWN
     Dates: start: 20190313

REACTIONS (2)
  - Ovarian hyperstimulation syndrome [Recovered/Resolved]
  - Off label use [Unknown]

NARRATIVE: CASE EVENT DATE: 2019
